FAERS Safety Report 19173490 (Version 1)
Quarter: 2021Q2

REPORT INFORMATION
  Report Type: Spontaneous
  Country: US (occurrence: US)
  Receive Date: 20210422
  Receipt Date: 20210422
  Transmission Date: 20210717
  Serious: Yes (Hospitalization)
  Sender: FDA-Public Use
  Company Number: None

PATIENT
  Age: 64 Year
  Sex: Female
  Weight: 72.6 kg

DRUGS (3)
  1. SODIUM CHLORIDE 0.9 % INFUSION (IV) [Concomitant]
     Dates: start: 20210407, end: 20210407
  2. BAMLANIVIMAB. [Suspect]
     Active Substance: BAMLANIVIMAB
     Indication: COVID-19
     Dosage: ?          OTHER FREQUENCY:ONCE;?
     Route: 040
     Dates: start: 20210407, end: 20210407
  3. ETESEVIMAB. [Suspect]
     Active Substance: ETESEVIMAB
     Indication: COVID-19
     Dosage: ?          OTHER FREQUENCY:ONCE;?
     Route: 040
     Dates: start: 20210407, end: 20210407

REACTIONS (4)
  - Dyspnoea [None]
  - Respiratory failure [None]
  - Pulmonary embolism [None]
  - Chronic obstructive pulmonary disease [None]

NARRATIVE: CASE EVENT DATE: 20210409
